FAERS Safety Report 4965455-2 (Version None)
Quarter: 2006Q1

REPORT INFORMATION
  Report Type: 
  Country: None (occurrence: None)
  Receive Date: 20060201
  Receipt Date: 20051227
  Transmission Date: 20060701
  Serious: No
  Sender: FDA-Public Use
  Company Number: 2005PV006310

PATIENT
  Age: 64 Year
  Sex: Female
  Weight: 108.4097 kg

DRUGS (18)
  1. BYETTA [Suspect]
     Indication: DIABETES MELLITUS NON-INSULIN-DEPENDENT
     Dosage: 5 MCG; BID; SC
     Route: 058
     Dates: start: 20051211
  2. ACTOS [Concomitant]
  3. SYNTHROID [Concomitant]
  4. ACCUPRIL [Concomitant]
  5. CELEBREX [Concomitant]
  6. POTASSIUM [Concomitant]
  7. FOLIC ACID [Concomitant]
  8. TRAZODONE HCL [Concomitant]
  9. PARAFON FORTE [Concomitant]
  10. ASCORBIC ACID [Concomitant]
  11. CALCIUM GLUCONATE [Concomitant]
  12. NEURONTIN [Concomitant]
  13. ULTRACET [Concomitant]
  14. CYMBALTA [Concomitant]
  15. LIDODERM [Concomitant]
  16. GLUCOSAMINE SULFATE [Concomitant]
  17. VISIONEX [Concomitant]
  18. OMEGA 3 [Concomitant]

REACTIONS (2)
  - CONSTIPATION [None]
  - PAINFUL DEFAECATION [None]
